FAERS Safety Report 4818737-9 (Version None)
Quarter: 2005Q4

REPORT INFORMATION
  Report Type: 
  Country: None (occurrence: None)
  Receive Date: 20051101
  Receipt Date: 20051018
  Transmission Date: 20060501
  Serious: Yes (Hospitalization)
  Sender: FDA-Public Use
  Company Number: 2005BI017848

PATIENT
  Age: 43 Year
  Sex: Female

DRUGS (10)
  1. AVONEX [Suspect]
     Indication: MULTIPLE SCLEROSIS
     Dosage: 30 UG; QW; IM
     Route: 030
     Dates: start: 20050906, end: 20050927
  2. MEDICATION NOS [Concomitant]
  3. VALIUM [Concomitant]
  4. LORTAB [Concomitant]
  5. BENADRYL [Concomitant]
  6. IBUPROFEN [Concomitant]
  7. LEXAPRO [Concomitant]
  8. GLIPIZIDE [Concomitant]
  9. INDERAL [Concomitant]
  10. DICLOFENAC [Concomitant]

REACTIONS (4)
  - CHILLS [None]
  - CONFUSIONAL STATE [None]
  - PYREXIA [None]
  - SEDATION [None]
